FAERS Safety Report 5812390-3 (Version None)
Quarter: 2008Q3

REPORT INFORMATION
  Report Type: 
  Country: None (occurrence: None)
  Receive Date: 20080716
  Receipt Date: 20080704
  Transmission Date: 20090109
  Serious: Yes (Hospitalization, Other)
  Sender: FDA-Public Use
  Company Number: DE-PFIZER INC-2008055534

PATIENT
  Age: 59 Year
  Sex: Male

DRUGS (4)
  1. VIAGRA [Suspect]
     Route: 048
  2. NALTREXONE HYDROCHLORIDE [Concomitant]
     Indication: PRURITUS
  3. URSODIOL [Concomitant]
     Indication: PRURITUS
  4. COLESTYRAMINE [Concomitant]
     Indication: PRURITUS

REACTIONS (7)
  - ANOREXIA [None]
  - FATIGUE [None]
  - HEPATOTOXICITY [None]
  - JAUNDICE [None]
  - NAUSEA [None]
  - PRURITUS [None]
  - WEIGHT DECREASED [None]
